FAERS Safety Report 24121582 (Version 1)
Quarter: 2024Q3

REPORT INFORMATION
  Report Type: Spontaneous
  Country: US (occurrence: None)
  Receive Date: 20240720
  Receipt Date: 20240720
  Transmission Date: 20241016
  Serious: Yes (Disabling)
  Sender: Public
  Company Number: None

PATIENT
  Age: 81 Year
  Sex: Female
  Weight: 58.5 kg

DRUGS (6)
  1. LEVULAN KERASTICK [Suspect]
     Active Substance: AMINOLEVULINIC ACID HYDROCHLORIDE
     Indication: Actinic keratosis
     Dates: start: 20240523, end: 20240718
  2. LISINOPRIL [Concomitant]
     Active Substance: LISINOPRIL
  3. RESTASIS [Concomitant]
     Active Substance: CYCLOSPORINE
  4. ASPIRIN [Concomitant]
     Active Substance: ASPIRIN
  5. Amlodapine [Concomitant]
  6. BIOTIN [Concomitant]
     Active Substance: BIOTIN

REACTIONS (5)
  - Abnormal behaviour [None]
  - Alcohol use [None]
  - Memory impairment [None]
  - Product label issue [None]
  - Nervousness [None]

NARRATIVE: CASE EVENT DATE: 20240719
